FAERS Safety Report 5016633-8 (Version None)
Quarter: 2006Q2

REPORT INFORMATION
  Report Type: 
  Country: None (occurrence: None)
  Receive Date: 20060419
  Receipt Date: 20060320
  Transmission Date: 20061013
  Serious: No
  Sender: FDA-Public Use
  Company Number: US200602000393

PATIENT
  Sex: Male

DRUGS (4)
  1. ALIMTA [Suspect]
  2. CISPLATIN [Concomitant]
  3. FOLIC ACID [Concomitant]
  4. CYANOCOBALAMIN [Concomitant]

REACTIONS (1)
  - HICCUPS [None]
